FAERS Safety Report 4320443-4 (Version None)
Quarter: 2004Q1

REPORT INFORMATION
  Report Type: 
  Country: None (occurrence: None)
  Receive Date: 20040319
  Receipt Date: 20040319
  Transmission Date: 20041129
  Serious: Yes (Other)
  Sender: FDA-Public Use
  Company Number: None

PATIENT
  Age: 83 Year
  Sex: Female

DRUGS (12)
  1. TEMAZEPAM [Suspect]
     Indication: SEDATION
     Dosage: 1 HR (0RALLY)
     Route: 048
     Dates: start: 20040315
  2. TEMAZEPAM [Suspect]
     Indication: SOMNOLENCE
     Dosage: 1 HR (0RALLY)
     Route: 048
     Dates: start: 20040315
  3. TEMAZEPAM [Suspect]
     Indication: SEDATION
     Dosage: 1 HR (0RALLY)
     Route: 048
     Dates: start: 20040316
  4. TEMAZEPAM [Suspect]
     Indication: SOMNOLENCE
     Dosage: 1 HR (0RALLY)
     Route: 048
     Dates: start: 20040316
  5. ATENOLOL [Concomitant]
  6. LEVOXYL [Concomitant]
  7. NEXIUM [Concomitant]
  8. FUROSEMIDE [Concomitant]
  9. FOSAMAX [Concomitant]
  10. MEPROBAMATE [Concomitant]
  11. LOMOTIL [Concomitant]
  12. CARTIA [Concomitant]

REACTIONS (3)
  - DRUG INEFFECTIVE [None]
  - INSOMNIA [None]
  - PHARMACEUTICAL PRODUCT COMPLAINT [None]
